FAERS Safety Report 25728086 (Version 1)
Quarter: 2025Q3

REPORT INFORMATION
  Report Type: Spontaneous
  Country: CA (occurrence: CA)
  Receive Date: 20250826
  Receipt Date: 20250826
  Transmission Date: 20251021
  Serious: Yes (Other)
  Sender: MYLAN
  Company Number: CA-MYLANLABS-2025M1072212

PATIENT
  Age: 28 Year
  Sex: Female

DRUGS (3)
  1. GABAPENTIN [Suspect]
     Active Substance: GABAPENTIN
     Indication: Drug use disorder
     Dosage: 100 MILLIGRAM, BID (1 EVERY 12 HOURS)
  2. GABAPENTIN [Suspect]
     Active Substance: GABAPENTIN
     Dosage: 1000 MILLIGRAM, Q8H (1 EVERY 8 HOURS)
  3. TOPIRAMATE [Suspect]
     Active Substance: TOPIRAMATE
     Indication: Drug use disorder

REACTIONS (1)
  - Paraesthesia [Recovered/Resolved]
